FAERS Safety Report 14704595 (Version 2)
Quarter: 2018Q2

REPORT INFORMATION
  Report Type: Spontaneous
  Country: CA (occurrence: CA)
  Receive Date: 20180402
  Receipt Date: 20180503
  Transmission Date: 20180711
  Serious: Yes (Hospitalization)
  Sender: FDA-Public Use
  Company Number: CA-TEVA-2018-CA-876708

PATIENT
  Age: 26 Year
  Sex: Male

DRUGS (3)
  1. TEVA-PREDNISONE [Suspect]
     Active Substance: PREDNISONE
     Indication: COLITIS ULCERATIVE
     Dosage: 40MG, DECREASING TO 0MG IN EIGHT WEEKS
     Route: 065
     Dates: start: 2015
  2. INFELCTRA [Concomitant]
     Indication: COLITIS ULCERATIVE
     Dosage: 40 MG
     Route: 042
     Dates: start: 20180315
  3. MEZAVANT [Concomitant]
     Active Substance: MESALAMINE
     Dosage: 40 MG
     Dates: start: 2015

REACTIONS (6)
  - Abdominal pain [Not Recovered/Not Resolved]
  - Colitis ulcerative [Unknown]
  - Weight decreased [Unknown]
  - Pyrexia [Unknown]
  - Drug resistance [Unknown]
  - Drug ineffective [Unknown]

NARRATIVE: CASE EVENT DATE: 201803
